FAERS Safety Report 9553231 (Version 1)
Quarter: 2013Q3

REPORT INFORMATION
  Report Type: Spontaneous
  Country: US (occurrence: None)
  Receive Date: 20130724
  Receipt Date: 20130724
  Transmission Date: 20140515
  Serious: Yes (Other)
  Sender: FDA-Public Use
  Company Number: PHEH2012US018660

PATIENT
  Age: 57 Year
  Sex: Female

DRUGS (5)
  1. GLEEVEC [Suspect]
     Indication: GASTROINTESTINAL STROMAL TUMOUR
     Route: 048
     Dates: start: 2008, end: 2011
  2. RAPAMUNE (SIROLIMUS) [Concomitant]
  3. FUROSEMIDE (FUROSEMIDE) [Concomitant]
  4. POTASSIUM (POTASSIUM) [Concomitant]
  5. PREDNISONE (PREDNISONE) [Concomitant]

REACTIONS (6)
  - Metastasis [None]
  - Hepatomegaly [None]
  - Oedema peripheral [None]
  - Fluid retention [None]
  - Drug ineffective [None]
  - Muscle spasms [None]
